FAERS Safety Report 14342372 (Version 1)
Quarter: 2018Q1

REPORT INFORMATION
  Report Type: Spontaneous
  Country: FR (occurrence: FR)
  Receive Date: 20180102
  Receipt Date: 20180102
  Transmission Date: 20180509
  Serious: Yes (Other)
  Sender: FDA-Public Use
  Company Number: FR-BAYER-2017-247236

PATIENT
  Age: 32 Year
  Sex: Female
  Weight: 69.98 kg

DRUGS (1)
  1. MIRENA [Suspect]
     Active Substance: LEVONORGESTREL
     Indication: CONTRACEPTION
     Dosage: 20 MCG/24HR, CONT
     Route: 015
     Dates: start: 201001, end: 20170607

REACTIONS (8)
  - Asthenia [Recovering/Resolving]
  - Hirsutism [Recovering/Resolving]
  - Fibroma [Not Recovered/Not Resolved]
  - Fungal infection [Recovering/Resolving]
  - Balance disorder [Recovering/Resolving]
  - Hot flush [Recovering/Resolving]
  - Diffuse alopecia [Recovering/Resolving]
  - Anxiety [Recovering/Resolving]

NARRATIVE: CASE EVENT DATE: 20150117
